FAERS Safety Report 9244393 (Version 1)
Quarter: 2013Q1

REPORT INFORMATION
  Report Type: Spontaneous
  Country: US (occurrence: None)
  Receive Date: 20121128
  Receipt Date: 20121128
  Transmission Date: 20140127
  Serious: Yes (Other)
  Sender: FDA-Public Use
  Company Number: 2012032606

PATIENT
  Age: 74 Year
  Sex: Female
  Weight: 45.1 kg

DRUGS (12)
  1. ALBUMINAR-25 [Suspect]
     Dates: start: 20120420
  2. CEFAZOLIN [Concomitant]
  3. MORPHINE [Concomitant]
  4. POTASSIUM CHLORIDE [Concomitant]
  5. NITROGLYCERIN (GLYCERYL TRINITRATE) [Concomitant]
  6. FUROSEMIDE [Concomitant]
  7. SUCRALFATE [Concomitant]
  8. ASPIRIN (ACETYLSALICYLIC ACID) [Concomitant]
  9. NORMAL SALINE (SODIUM CHLORIDE) [Concomitant]
  10. DOBUTAMINE (DOBUTAMINE) [Concomitant]
  11. DOPAMINE [Concomitant]
  12. ENLAPRILAT (ENALAPRILAT) [Concomitant]

REACTIONS (1)
  - Hypotension [None]
